FAERS Safety Report 5603418-4 (Version None)
Quarter: 2008Q1

REPORT INFORMATION
  Report Type: 
  Country: None (occurrence: None)
  Receive Date: 20080123
  Receipt Date: 20080108
  Transmission Date: 20080703
  Serious: Yes (Hospitalization, Other)
  Sender: FDA-Public Use
  Company Number: 2008AP000053

PATIENT
  Age: 58 Year
  Sex: Male

DRUGS (5)
  1. PAROXETINE HCL [Suspect]
     Dosage: 20 MG; PO; QD
     Route: 048
     Dates: start: 20071121
  2. BENDROFLUMETHIAZIDE (BENDROFLUMETHIAZIDE) [Concomitant]
  3. LISINOPRIL [Concomitant]
  4. METOPROLOL TARTRATE [Concomitant]
  5. SIMVASTATIN [Concomitant]

REACTIONS (5)
  - FEELING ABNORMAL [None]
  - MEMORY IMPAIRMENT [None]
  - PARANOIA [None]
  - PERSONALITY CHANGE [None]
  - THINKING ABNORMAL [None]
